FAERS Safety Report 8420210-6 (Version None)
Quarter: 2012Q2

REPORT INFORMATION
  Report Type: 
  Country: None (occurrence: None)
  Receive Date: 20120607
  Receipt Date: 20120525
  Transmission Date: 20120825
  Serious: No
  Sender: FDA-Public Use
  Company Number: US-ASTRAZENECA-2012SE34129

PATIENT
  Age: 52 Year
  Sex: Female

DRUGS (1)
  1. VIMOVO [Suspect]
     Dosage: 500 MG NAPROXEN + 20 MG ESOMEPRAZOLE MAGNESIUM - TWO TIMES A DAY
     Route: 048
     Dates: start: 20111101

REACTIONS (2)
  - INTENTIONAL DRUG MISUSE [None]
  - NASOPHARYNGITIS [None]
